FAERS Safety Report 6656568-8 (Version None)
Quarter: 2010Q1

REPORT INFORMATION
  Report Type: 
  Country: None (occurrence: None)
  Receive Date: 20100329
  Receipt Date: 20100319
  Transmission Date: 20100710
  Serious: Yes (Hospitalization)
  Sender: FDA-Public Use
  Company Number: US-ASTRAZENECA-2010SE12320

PATIENT
  Age: 50 Year
  Sex: Female

DRUGS (5)
  1. SEROQUEL [Suspect]
     Indication: BIPOLAR DISORDER
     Dosage: 200 MG IN AM AND 600 MG AT BEDTIME
     Route: 048
  2. WELLBUTRIN XL [Concomitant]
     Route: 048
  3. KLONOPIN [Concomitant]
     Route: 048
  4. COGENTIN [Concomitant]
     Route: 048
  5. AMBIEN [Concomitant]
     Dosage: AT BEDTIME
     Route: 048

REACTIONS (4)
  - DISORIENTATION [None]
  - HALLUCINATION, VISUAL [None]
  - INCORRECT DOSE ADMINISTERED [None]
  - NEGLECT OF PERSONAL APPEARANCE [None]
